FAERS Safety Report 8668115 (Version 2)
Quarter: 2012Q4

REPORT INFORMATION
  Report Type: 
  Country: US (occurrence: US)
  Receive Date: 20120717
  Receipt Date: 20120926
  Transmission Date: 20130627
  Serious: Yes (Hospitalization, Other)
  Sender: FDA-Public Use
  Company Number: US-BAYER-2012-068356

PATIENT
  Age: 33 Year
  Sex: Female
  Weight: 65.31 kg

DRUGS (14)
  1. OXYCODONE/APAP [Concomitant]
     Indication: PAIN
     Dosage: 5 mg/ 325 mg  1 to 2 tablets every 8 hours as needed
     Route: 048
  2. LYRICA [Concomitant]
     Dosage: 50 mg HS
     Route: 048
  3. LYRICA [Concomitant]
     Dosage: TK one C po qhs (daily at bedtime) for 5 days, and then increase dosage to one C po BID
  4. PROMETHAZINE [Concomitant]
     Indication: NAUSEA
     Dosage: 25 mg every 6 hours and PRN
  5. PROMETHAZINE [Concomitant]
     Indication: VOMITING
  6. VICODIN [Concomitant]
     Dosage: UNK UNK, PRN
  7. PROPOXYPHENE NAPSYLATE W/ACETAMINOPHENE [Concomitant]
     Indication: PAIN
     Dosage: 650 mg, 1/2 to 1 tablet every 6 hrs as needed
     Route: 048
  8. YAZ [Suspect]
     Indication: ACNE
     Dosage: UNK
     Dates: start: 20080701, end: 200810
  9. FLONASE [Concomitant]
     Indication: EUSTACHIAN TUBE DYSFUNCTION
     Dosage: 16 mg, UNK  Last Filled: 30-Sep-2009
     Route: 045
  10. ALPRAZOLAM [Concomitant]
     Indication: PANIC REACTION
     Dosage: 0.25 mg, 1 to 2 tablets BID
     Route: 048
  11. AZITHROMYCIN [Concomitant]
     Dosage: 250 mg, UNK
  12. VALTREX [Concomitant]
     Dosage: 1 mg, BID
     Route: 048
  13. PREDNISONE [Concomitant]
     Dosage: 5 mg, UNK
  14. CEFDINIR [Concomitant]
     Dosage: 300 mg, 2 capsules daily
     Route: 048

REACTIONS (20)
  - Deep vein thrombosis [Recovered/Resolved]
  - Pulmonary fibrosis [None]
  - Nausea [Recovered/Resolved]
  - Pain in extremity [Recovered/Resolved]
  - Injury [Recovered/Resolved]
  - Dyspnoea [Recovered/Resolved]
  - Gait disturbance [Recovered/Resolved]
  - Chest pain [Recovered/Resolved]
  - Anxiety [None]
  - Depression [None]
  - Abnormal weight gain [None]
  - Oedema peripheral [Recovered/Resolved]
  - Panic attack [None]
  - Paraesthesia [Recovered/Resolved]
  - Emotional distress [None]
  - Anhedonia [None]
  - General physical health deterioration [None]
  - Pain [Recovered/Resolved]
  - Pain [None]
  - Pulmonary embolism [Recovered/Resolved]
